FAERS Safety Report 8530278-4 (Version None)
Quarter: 2012Q3

REPORT INFORMATION
  Report Type: 
  Country: None (occurrence: None)
  Receive Date: 20120723
  Receipt Date: 20120716
  Transmission Date: 20120928
  Serious: Yes (Life-Threatening, Hospitalization)
  Sender: FDA-Public Use
  Company Number: FR-JNJFOC-20120602507

PATIENT
  Age: 70 Year
  Sex: Female

DRUGS (19)
  1. REMICADE [Suspect]
     Indication: PSORIATIC ARTHROPATHY
     Route: 042
     Dates: start: 20120322
  2. REMICADE [Suspect]
     Route: 042
     Dates: start: 20120405
  3. FLUTICASONE PROPIONATE/SALMETEROL [Concomitant]
     Route: 065
  4. LYRICA [Concomitant]
     Route: 065
  5. REMICADE [Suspect]
     Route: 042
     Dates: start: 20120405
  6. SPIRIVA [Concomitant]
     Route: 065
  7. PREDNISONE TAB [Concomitant]
     Route: 065
  8. REMICADE [Suspect]
     Dosage: 3RD INFUSION
     Route: 042
     Dates: start: 20120503
  9. REMICADE [Suspect]
     Dosage: 3RD INFUSION
     Route: 042
     Dates: start: 20120503
  10. PRAXILENE [Concomitant]
     Route: 065
  11. NEXIUM [Concomitant]
     Route: 065
  12. REMICADE [Suspect]
     Indication: CROHN'S DISEASE
     Route: 042
     Dates: start: 20120322
  13. PLAVIX [Concomitant]
     Route: 065
  14. VENTOLIN [Concomitant]
     Route: 065
  15. PAROXETINE HCL [Concomitant]
     Route: 065
  16. HAVLANE [Concomitant]
     Route: 065
  17. KETOPROFEN [Concomitant]
     Route: 065
  18. SULFARLEM [Concomitant]
     Route: 065
  19. ACETAMINOPHEN [Concomitant]
     Route: 065

REACTIONS (1)
  - MENINGITIS LISTERIA [None]
